FAERS Safety Report 7636933-2 (Version None)
Quarter: 2011Q3

REPORT INFORMATION
  Report Type: 
  Country: None (occurrence: None)
  Receive Date: 20110726
  Receipt Date: 20110505
  Transmission Date: 20111222
  Serious: Yes (Hospitalization)
  Sender: FDA-Public Use
  Company Number: DE-BAYER-2011-038878

PATIENT
  Age: 71 Year
  Sex: Female
  Weight: 75 kg

DRUGS (1)
  1. GADAVIST [Suspect]
     Dosage: 1 DF= .01MMOL/KG, ONCE
     Route: 042
     Dates: start: 20081118, end: 20081118

REACTIONS (3)
  - COLLAGEN DISORDER [None]
  - ALVEOLITIS [None]
  - PULMONARY FIBROSIS [None]
